FAERS Safety Report 9636048 (Version 2)
Quarter: 2013Q4

REPORT INFORMATION
  Report Type: Spontaneous
  Country: ZA (occurrence: ZA)
  Receive Date: 20131021
  Receipt Date: 20131024
  Transmission Date: 20140711
  Serious: Yes (Other)
  Sender: FDA-Public Use
  Company Number: ZA-PFIZER INC-2013295703

PATIENT
  Sex: Female

DRUGS (2)
  1. ADVIL CS [Suspect]
     Indication: NASOPHARYNGITIS
     Dosage: 1-2 TABLETS EVERY 4 TO 6 HOURS
     Route: 048
     Dates: start: 20131010, end: 20131010
  2. ADVIL CS [Suspect]
     Indication: SINUS DISORDER

REACTIONS (7)
  - Hypersensitivity [Recovering/Resolving]
  - Eye swelling [Recovering/Resolving]
  - Oedema peripheral [Recovering/Resolving]
  - Urticaria [Recovering/Resolving]
  - Skin burning sensation [Recovering/Resolving]
  - Rash [Recovering/Resolving]
  - Rash pruritic [Recovering/Resolving]
